FAERS Safety Report 13350872 (Version 1)
Quarter: 2017Q1

REPORT INFORMATION
  Report Type: Spontaneous
  Country: JP (occurrence: JP)
  Receive Date: 20170320
  Receipt Date: 20170320
  Transmission Date: 20170429
  Serious: Yes (Other)
  Sender: FDA-Public Use
  Company Number: JP-JNJFOC-20170317369

PATIENT

DRUGS (5)
  1. SOVRIAD [Suspect]
     Active Substance: SIMEPREVIR
     Indication: CHRONIC HEPATITIS C
     Dosage: FOR 12 WEEKS
     Route: 065
  2. PEGASYS [Suspect]
     Active Substance: PEGINTERFERON ALFA-2A
     Indication: CHRONIC HEPATITIS C
     Dosage: FOR 12 WEEKS
     Route: 065
  3. REBETOL [Suspect]
     Active Substance: RIBAVIRIN
     Indication: CHRONIC HEPATITIS C
     Dosage: FOR 12 WEEKS; DOSE ACCORDING TO BODY WEIGHT
     Route: 065
  4. PEGINTRON [Suspect]
     Active Substance: PEGINTERFERON ALFA-2B
     Indication: CHRONIC HEPATITIS C
     Dosage: FOR 12 WEEKS
     Route: 065
  5. COPEGUS [Suspect]
     Active Substance: RIBAVIRIN
     Indication: CHRONIC HEPATITIS C
     Dosage: FOR 12 WEEKS; DOSE ACCORDING TO BODY WEIGHT
     Route: 065

REACTIONS (3)
  - Adverse event [Unknown]
  - Anaemia [Unknown]
  - Remission not achieved [Unknown]
